FAERS Safety Report 6809448-9 (Version None)
Quarter: 2010Q2

REPORT INFORMATION
  Report Type: 
  Country: None (occurrence: None)
  Receive Date: 20100625
  Receipt Date: 20090903
  Transmission Date: 20101027
  Serious: Yes (Other)
  Sender: FDA-Public Use
  Company Number: INDAB-10-0292

PATIENT
  Age: 58 Year
  Sex: Female

DRUGS (1)
  1. ABRAXANE [Suspect]
     Indication: BREAST CANCER
     Dosage: 260 MG/M2
     Dates: start: 20090706, end: 20090706

REACTIONS (2)
  - PRURITUS [None]
  - URTICARIA [None]
